FAERS Safety Report 25721648 (Version 2)
Quarter: 2025Q3

REPORT INFORMATION
  Report Type: Spontaneous
  Country: US (occurrence: US)
  Receive Date: 20250825
  Receipt Date: 20250905
  Transmission Date: 20251020
  Serious: Yes (Other)
  Sender: PFIZER
  Company Number: US-PFIZER INC-202500168688

PATIENT
  Age: 52 Year
  Sex: Female

DRUGS (12)
  1. IBRANCE [Suspect]
     Active Substance: PALBOCICLIB
     Indication: Breast cancer female
     Route: 048
     Dates: start: 20250806
  2. ARIPIPRAZOLE [Concomitant]
     Active Substance: ARIPIPRAZOLE
  3. CELECOXIB [Concomitant]
     Active Substance: CELECOXIB
  4. DULOXETINE [Concomitant]
     Active Substance: DULOXETINE
  5. FOLIC ACID [Concomitant]
     Active Substance: FOLIC ACID
  6. GABAPENTIN [Concomitant]
     Active Substance: GABAPENTIN
  7. METHOTREXATE [Concomitant]
     Active Substance: METHOTREXATE
  8. METOPROLOL TARTRATE [Concomitant]
     Active Substance: METOPROLOL TARTRATE
  9. ACETAMINOPHEN\OXYCODONE HYDROCHLORIDE [Concomitant]
     Active Substance: ACETAMINOPHEN\OXYCODONE HYDROCHLORIDE
  10. PANTOPRAZOLE [Concomitant]
     Active Substance: PANTOPRAZOLE
  11. PREDNISONE [Concomitant]
     Active Substance: PREDNISONE
  12. TRAZODONE [Concomitant]
     Active Substance: TRAZODONE HYDROCHLORIDE

REACTIONS (5)
  - Neuropathy peripheral [Not Recovered/Not Resolved]
  - Condition aggravated [Not Recovered/Not Resolved]
  - Oropharyngeal pain [Recovering/Resolving]
  - Stomatitis [Recovering/Resolving]
  - Fatigue [Not Recovered/Not Resolved]

NARRATIVE: CASE EVENT DATE: 20250822
